FAERS Safety Report 14892159 (Version 3)
Quarter: 2018Q2

REPORT INFORMATION
  Report Type: Spontaneous
  Country: US (occurrence: US)
  Receive Date: 20180514
  Receipt Date: 20180612
  Transmission Date: 20180711
  Serious: Yes (Hospitalization)
  Sender: FDA-Public Use
  Company Number: US-BIOMARINAP-US-2018-118190

PATIENT
  Sex: Female

DRUGS (1)
  1. VIMIZIM [Suspect]
     Active Substance: ELOSULFASE ALFA
     Indication: MUCOPOLYSACCHARIDOSIS IV
     Dosage: 90 MG, QW
     Route: 042

REACTIONS (5)
  - Atlantoaxial instability [Unknown]
  - Gait disturbance [Unknown]
  - Headache [Unknown]
  - Pain [Unknown]
  - Back pain [Unknown]
